FAERS Safety Report 10416342 (Version 1)
Quarter: 2014Q3

REPORT INFORMATION
  Report Type: Spontaneous
  Country: GB (occurrence: GB)
  Receive Date: 20140828
  Receipt Date: 20140828
  Transmission Date: 20150326
  Serious: Yes (Hospitalization)
  Sender: FDA-Public Use
  Company Number: GB-TEVA-503724ISR

PATIENT
  Age: 78 Year
  Sex: Male

DRUGS (10)
  1. RAMIPRIL. [Suspect]
     Active Substance: RAMIPRIL
     Dosage: 100 MILLIGRAM DAILY; 10MG ONCE DAILY  (OD)
     Route: 048
     Dates: end: 20120404
  2. CALCICHEW D3 [Concomitant]
     Active Substance: CALCIUM\CHOLECALCIFEROL
     Dosage: 2 DOSAGE FORMS DAILY; 1 TWICE DAILY (BD)
  3. FUROSEMIDE. [Suspect]
     Active Substance: FUROSEMIDE
     Dosage: 20 MILLIGRAM DAILY; 20MG ONCE DAILY (OD)
     Route: 048
     Dates: end: 20120404
  4. OMACOR [Concomitant]
     Active Substance: OMEGA-3-ACID ETHYL ESTERS
     Dosage: 1 DOSAGE FORMS DAILY; 1 ONCE DAILY (OD)
  5. SPIRONOLACTONE. [Suspect]
     Active Substance: SPIRONOLACTONE
  6. ASPIRIN. [Concomitant]
     Active Substance: ASPIRIN
     Dosage: 75 MILLIGRAM DAILY; 75MG EVERY MORNING (OM)
  7. ALENDRONIC ACID [Concomitant]
     Active Substance: ALENDRONIC ACID
     Dosage: 70MG WEEKLY
  8. DIPYRIDAMOLE. [Concomitant]
     Active Substance: DIPYRIDAMOLE
     Dosage: 400 MILLIGRAM DAILY; 200MG TWICE DAILY (BD)
  9. OMEPRAZOLE. [Concomitant]
     Active Substance: OMEPRAZOLE
     Dosage: 20 MILLIGRAM DAILY; 20MG EVERY MORNING (OM)
  10. PREDNISOLONE. [Concomitant]
     Active Substance: PREDNISOLONE
     Dosage: 1 MILLIGRAM DAILY; 1MG EVERY MORNING (OM)

REACTIONS (6)
  - Renal failure acute [Recovered/Resolved]
  - Oedema peripheral [Unknown]
  - Pyrexia [Unknown]
  - Abdominal pain [Unknown]
  - Tubulointerstitial nephritis [Unknown]
  - Diverticulitis [Unknown]

NARRATIVE: CASE EVENT DATE: 20120404
